FAERS Safety Report 9160720 (Version 1)
Quarter: 2013Q1

REPORT INFORMATION
  Report Type: Spontaneous
  Country: US (occurrence: US)
  Receive Date: 20130313
  Receipt Date: 20130313
  Transmission Date: 20140127
  Serious: No
  Sender: FDA-Public Use
  Company Number: US-ABBOTT-12P-163-0991162-00

PATIENT
  Sex: Female
  Weight: 81.72 kg

DRUGS (2)
  1. DEPAKOTE [Suspect]
     Indication: BIPOLAR DISORDER
     Dates: start: 2006
  2. TRAZODONE [Concomitant]
     Indication: SLEEP DISORDER

REACTIONS (6)
  - Fatigue [Not Recovered/Not Resolved]
  - Alopecia [Not Recovered/Not Resolved]
  - Rash papular [Not Recovered/Not Resolved]
  - Purpura [Not Recovered/Not Resolved]
  - Off label use [Not Recovered/Not Resolved]
  - Bipolar disorder [Not Recovered/Not Resolved]
